FAERS Safety Report 23492786 (Version 1)
Quarter: 2024Q1

REPORT INFORMATION
  Report Type: Report from Study
  Country: JP (occurrence: JP)
  Receive Date: 20240207
  Receipt Date: 20240207
  Transmission Date: 20240410
  Serious: Yes (Disabling, Other)
  Sender: FDA-Public Use
  Company Number: JP-VISIOX-2024VSX00016

PATIENT
  Age: 8 Decade
  Sex: Female

DRUGS (2)
  1. OMIDENEPAG ISOPROPYL [Suspect]
     Active Substance: OMIDENEPAG ISOPROPYL
     Indication: Normal tension glaucoma
     Dosage: UNK, 1X/DAY OD
     Route: 047
     Dates: start: 20210210, end: 20210908
  2. HYALURONATE SODIUM [Concomitant]
     Active Substance: HYALURONATE SODIUM
     Indication: Dry eye
     Dosage: 4 TIMES A DAY OU (4 IN 1 D)
     Route: 047

REACTIONS (4)
  - Retinal vein occlusion [Not Recovered/Not Resolved]
  - Refraction disorder [Recovered/Resolved]
  - Intraocular pressure fluctuation [Recovered/Resolved]
  - Refraction disorder [Recovered/Resolved]

NARRATIVE: CASE EVENT DATE: 20210512
